FAERS Safety Report 20756514 (Version 1)
Quarter: 2022Q2

REPORT INFORMATION
  Report Type: Spontaneous
  Country: ES (occurrence: ES)
  Receive Date: 20220427
  Receipt Date: 20220427
  Transmission Date: 20220721
  Serious: Yes (Other)
  Sender: FDA-Public Use
  Company Number: ES-PFIZER INC-202200498201

PATIENT
  Age: 38 Year
  Sex: Male

DRUGS (8)
  1. LINEZOLID [Suspect]
     Active Substance: LINEZOLID
     Indication: Haemodynamic instability
     Dosage: UNK
  2. LINEZOLID [Suspect]
     Active Substance: LINEZOLID
     Indication: Evidence based treatment
  3. ANIDULAFUNGIN [Suspect]
     Active Substance: ANIDULAFUNGIN
     Indication: Haemodynamic instability
     Dosage: UNK
  4. ANIDULAFUNGIN [Suspect]
     Active Substance: ANIDULAFUNGIN
     Indication: Evidence based treatment
  5. MEROPENEM [Suspect]
     Active Substance: MEROPENEM
     Indication: Haemodynamic instability
     Dosage: UNK
  6. MEROPENEM [Suspect]
     Active Substance: MEROPENEM
     Indication: Evidence based treatment
  7. AMIKACIN SULFATE [Suspect]
     Active Substance: AMIKACIN SULFATE
     Indication: Haemodynamic instability
     Dosage: UNK
  8. AMIKACIN SULFATE [Suspect]
     Active Substance: AMIKACIN SULFATE
     Indication: Evidence based treatment

REACTIONS (1)
  - Drug ineffective [Unknown]
